FAERS Safety Report 9296312 (Version 3)
Quarter: 2013Q3

REPORT INFORMATION
  Report Type: Report from Study
  Country: US (occurrence: US)
  Receive Date: 20130517
  Receipt Date: 20130821
  Transmission Date: 20140515
  Serious: Yes (Hospitalization, Other)
  Sender: FDA-Public Use
  Company Number: US-ALEXION-A201301037

PATIENT
  Age: 45 Year
  Sex: Male
  Weight: 68 kg

DRUGS (22)
  1. SOLIRIS [Suspect]
     Indication: HAEMOLYTIC URAEMIC SYNDROME
     Dosage: 300 MG, QW
     Route: 042
     Dates: start: 20130411
  2. XANAX [Concomitant]
     Dosage: 1 MG, BID
     Route: 048
     Dates: start: 20130213
  3. VERAPAMIL [Concomitant]
     Dosage: 240 MG, QD
     Route: 048
     Dates: start: 20130213
  4. LEXAPRO [Concomitant]
     Dosage: 10 MG, QD
     Route: 048
     Dates: start: 20130213
  5. OPANA ER [Concomitant]
     Dosage: 10 MG. UNK
     Route: 048
     Dates: start: 20130213
  6. NEXIUM [Concomitant]
     Dosage: 40 MG, QD
     Route: 048
     Dates: start: 20130213
  7. RISPERIDONE [Concomitant]
     Dosage: 1 MG, BID
     Route: 048
     Dates: start: 20130213
  8. FOLIC ACID [Concomitant]
     Dosage: 1 MG, QD
     Route: 048
     Dates: start: 20130213
  9. TESTOSTERONE [Concomitant]
     Dosage: 75 MG, UNK
     Route: 030
     Dates: start: 20130213
  10. PREDNISONE [Concomitant]
     Dosage: 20 MG, AS DIRECTED
     Route: 048
     Dates: start: 20130305
  11. FERREX [Concomitant]
     Dosage: 150 MG, QD
     Route: 048
     Dates: start: 20130313
  12. AMITRIPTYLINE [Concomitant]
     Dosage: 50 MG, QD
     Route: 048
     Dates: start: 20130313
  13. OMEGA 3-6-9 [Concomitant]
     Dosage: 300-1000 MG, QD
     Route: 048
     Dates: start: 20130313
  14. MULTIVITAMIN [Concomitant]
     Dosage: UNK
     Route: 048
     Dates: start: 20130313
  15. LUTEIN [Concomitant]
     Dosage: 20 MG, QD
     Route: 048
     Dates: start: 20130313
  16. FIORICET [Concomitant]
     Dosage: 50-25-40 MG, Q4H
     Route: 048
     Dates: start: 20130419
  17. CLONIDINE [Concomitant]
     Dosage: 0.1 MG, BID
     Route: 048
     Dates: start: 20130425
  18. GABAPENTIN [Concomitant]
     Dosage: 300 MG, QD
     Route: 048
     Dates: start: 20130425
  19. CYANOCOBALAMIN [Concomitant]
     Dosage: 1000 ?G, QW
     Route: 030
     Dates: start: 20130213
  20. ATIVAN [Concomitant]
     Dosage: 2 MG, QD
     Route: 048
     Dates: start: 20130213
  21. CIPRO [Concomitant]
     Dosage: 500 MG, QD
     Route: 048
     Dates: start: 20130419
  22. KLOR-CON [Concomitant]
     Dosage: 10 MG, 5XDAY
     Route: 048

REACTIONS (7)
  - Cardiomyopathy [Not Recovered/Not Resolved]
  - Cardiac failure congestive [Not Recovered/Not Resolved]
  - Renal failure [Unknown]
  - Prothrombin time prolonged [Unknown]
  - Pain [Unknown]
  - Nausea [Recovered/Resolved]
  - Vomiting [Recovered/Resolved]
